FAERS Safety Report 9005855 (Version 3)
Quarter: 2013Q1

REPORT INFORMATION
  Report Type: Spontaneous
  Country: GB (occurrence: GB)
  Receive Date: 20130109
  Receipt Date: 20130220
  Transmission Date: 20140127
  Serious: Yes (Hospitalization)
  Sender: FDA-Public Use
  Company Number: GB-US-EMD SERONO, INC.-7186022

PATIENT
  Sex: Male

DRUGS (2)
  1. REBIF [Suspect]
     Indication: RELAPSING-REMITTING MULTIPLE SCLEROSIS
     Route: 058
     Dates: start: 20110620
  2. OMEPRAZOLE [Concomitant]
     Indication: DUODENOGASTRIC REFLUX
     Route: 048
     Dates: start: 20121001

REACTIONS (10)
  - Circulatory collapse [Unknown]
  - Viral infection [Unknown]
  - Uhthoff^s phenomenon [Unknown]
  - Motor dysfunction [Unknown]
  - Feeling hot [Unknown]
  - Sleep disorder [Unknown]
  - Lethargy [Unknown]
  - Reflux gastritis [Not Recovered/Not Resolved]
  - Malaise [Unknown]
  - Depression [Recovering/Resolving]
